FAERS Safety Report 11850471 (Version 1)
Quarter: 2015Q4

REPORT INFORMATION
  Report Type: Spontaneous
  Country: US (occurrence: US)
  Receive Date: 20151218
  Receipt Date: 20151218
  Transmission Date: 20160305
  Serious: No
  Sender: FDA-Public Use
  Company Number: US-JNJFOC-20151122915

PATIENT
  Sex: Female

DRUGS (3)
  1. FLONASE [Concomitant]
     Active Substance: FLUTICASONE PROPIONATE
     Indication: NASAL CONGESTION
     Route: 065
  2. SUDAFED 12 HOUR [Suspect]
     Active Substance: PSEUDOEPHEDRINE HYDROCHLORIDE
     Indication: MYCOTIC ALLERGY
     Dosage: ONCE OR TWICE DAILY AS NEEDED; YEARS AGO
     Route: 048
  3. SUDAFED 12 HOUR [Suspect]
     Active Substance: PSEUDOEPHEDRINE HYDROCHLORIDE
     Indication: SINUS DISORDER
     Dosage: ONCE OR TWICE DAILY AS NEEDED; YEARS AGO
     Route: 048

REACTIONS (8)
  - Therapeutic response unexpected [Unknown]
  - Pain [None]
  - Headache [None]
  - Impaired work ability [None]
  - Off label use [Unknown]
  - Drug dose omission [None]
  - Nasal congestion [None]
  - Product use issue [Unknown]
